FAERS Safety Report 20862418 (Version 1)
Quarter: 2022Q2

REPORT INFORMATION
  Report Type: Spontaneous
  Country: HU (occurrence: HU)
  Receive Date: 20220523
  Receipt Date: 20220523
  Transmission Date: 20220721
  Serious: Yes (Death, Other)
  Sender: FDA-Public Use
  Company Number: HU-002147023-NVSC2022HU089741

PATIENT
  Age: 71 Year
  Sex: Male

DRUGS (15)
  1. BISOPROLOL [Suspect]
     Active Substance: BISOPROLOL
     Indication: Product used for unknown indication
     Dosage: 10 MILLIGRAM, QD (5 MG, BID)
     Route: 065
  2. ENTRESTO [Suspect]
     Active Substance: SACUBITRIL\VALSARTAN
     Indication: Product used for unknown indication
     Dosage: 400 MILLIGRAM, QD (200 MG, BID (97/103 MG))
     Route: 048
     Dates: start: 201907
  3. ISOSORBIDE MONONITRATE [Suspect]
     Active Substance: ISOSORBIDE MONONITRATE
     Indication: Product used for unknown indication
     Dosage: 60 MILLIGRAM
     Route: 065
  4. UBIDECARENONE [Concomitant]
     Active Substance: UBIDECARENONE
     Indication: Product used for unknown indication
     Dosage: 200 MILLIGRAM
     Route: 065
  5. ALLOPURINOL [Concomitant]
     Active Substance: ALLOPURINOL
     Indication: Product used for unknown indication
     Dosage: 300 MILLIGRAM
     Route: 065
  6. AMIODARONE [Concomitant]
     Active Substance: AMIODARONE
     Indication: Product used for unknown indication
     Dosage: 200 MILLIGRAM
     Route: 065
  7. EMPAGLIFLOZIN\METFORMIN HYDROCHLORIDE [Concomitant]
     Active Substance: EMPAGLIFLOZIN\METFORMIN HYDROCHLORIDE
     Indication: Product used for unknown indication
     Dosage: UNK, QD (UNK UNK, BID (5/1000 MG))
     Route: 065
  8. FUROSEMIDE SODIUM [Concomitant]
     Active Substance: FUROSEMIDE SODIUM
     Indication: Product used for unknown indication
     Dosage: 250 MILLIGRAM
     Route: 065
  9. LEVOTHYROXINE SODIUM [Concomitant]
     Active Substance: LEVOTHYROXINE SODIUM
     Indication: Product used for unknown indication
     Dosage: 25 MICROGRAM
     Route: 065
  10. TRIMETAZIDINE [Concomitant]
     Active Substance: TRIMETAZIDINE
     Indication: Product used for unknown indication
     Dosage: 40 MILLIGRAM
     Route: 065
  11. THEOPHYLLINE ANHYDROUS [Concomitant]
     Active Substance: THEOPHYLLINE ANHYDROUS
     Indication: Product used for unknown indication
     Dosage: 300 MILLIGRAM, QD (150 MG, BID)
     Route: 065
  12. SPIRONOLACTONE [Concomitant]
     Active Substance: SPIRONOLACTONE
     Indication: Product used for unknown indication
     Dosage: 50 MILLIGRAM
     Route: 065
  13. POTASSIUM CHLORIDE [Concomitant]
     Active Substance: POTASSIUM CHLORIDE
     Indication: Product used for unknown indication
     Dosage: 2400 MILLIGRAM
     Route: 065
  14. WARFARIN [Concomitant]
     Active Substance: WARFARIN
     Indication: Product used for unknown indication
     Dosage: 4 MILLIGRAM
     Route: 065
  15. WARFARIN [Concomitant]
     Active Substance: WARFARIN
     Dosage: 5 MILLIGRAM
     Route: 065

REACTIONS (1)
  - Cardiac failure [Fatal]
